FAERS Safety Report 5638916-0 (Version None)
Quarter: 2008Q1

REPORT INFORMATION
  Report Type: 
  Country: None (occurrence: None)
  Receive Date: 20080225
  Receipt Date: 20080225
  Transmission Date: 20080703
  Serious: Yes (Other)
  Sender: FDA-Public Use
  Company Number: None

PATIENT
  Age: 59 Year
  Sex: Female
  Weight: 77.1115 kg

DRUGS (2)
  1. CHANTIX [Suspect]
     Indication: SMOKING CESSATION THERAPY
     Dosage: CUTANEOUS
     Route: 003
     Dates: start: 20071001, end: 20071129
  2. CHANTIX [Suspect]

REACTIONS (5)
  - APHTHOUS STOMATITIS [None]
  - DEPRESSION [None]
  - MENTAL STATUS CHANGES [None]
  - NICOTINE DEPENDENCE [None]
  - WITHDRAWAL SYNDROME [None]
